FAERS Safety Report 7251786-2 (Version None)
Quarter: 2011Q1

REPORT INFORMATION
  Report Type: 
  Country: None (occurrence: None)
  Receive Date: 20110128
  Receipt Date: 20100226
  Transmission Date: 20110831
  Serious: No
  Sender: FDA-Public Use
  Company Number: US-ABBOTT-10P-163-0620542-00

PATIENT
  Sex: Female
  Weight: 53.572 kg

DRUGS (6)
  1. ZANTAC [Concomitant]
     Indication: GASTROOESOPHAGEAL REFLUX DISEASE
     Route: 048
  2. LYRICA [Concomitant]
     Indication: HEADACHE
     Route: 048
  3. HUMIRA [Suspect]
     Indication: PSORIASIS
     Dates: start: 20091209
  4. ZOCOR [Concomitant]
     Indication: BLOOD CHOLESTEROL
     Route: 048
  5. MICARDIS [Concomitant]
     Indication: HYPERTENSION
     Route: 048
  6. BYSTOLIC [Concomitant]
     Indication: HYPERTENSION
     Route: 048

REACTIONS (5)
  - ANIMAL BITE [None]
  - DRUG INEFFECTIVE [None]
  - EXCORIATION [None]
  - ADMINISTRATION SITE PAIN [None]
  - INJECTION SITE PAIN [None]
